FAERS Safety Report 24965412 (Version 1)
Quarter: 2025Q1

REPORT INFORMATION
  Report Type: Spontaneous
  Country: US (occurrence: None)
  Receive Date: 20250212
  Receipt Date: 20250212
  Transmission Date: 20250409
  Serious: Yes (Other)
  Sender: FDA-CTU
  Company Number: None

PATIENT
  Age: 72 Year
  Sex: Female
  Weight: 69.75 kg

DRUGS (4)
  1. VABYSMO [Suspect]
     Active Substance: FARICIMAB-SVOA
     Indication: Retinal vein occlusion
     Dates: start: 20240312, end: 20241112
  2. LISINOPRIL [Concomitant]
     Active Substance: LISINOPRIL
  3. SIMVASTATIN [Concomitant]
     Active Substance: SIMVASTATIN
  4. AMLODIPINE [Concomitant]
     Active Substance: AMLODIPINE BESYLATE

REACTIONS (2)
  - Blindness [None]
  - Optic nerve injury [None]

NARRATIVE: CASE EVENT DATE: 20240905
